FAERS Safety Report 19057090 (Version 1)
Quarter: 2021Q1

REPORT INFORMATION
  Report Type: Spontaneous
  Country: RO (occurrence: RO)
  Receive Date: 20210325
  Receipt Date: 20210325
  Transmission Date: 20210420
  Serious: Yes (Hospitalization)
  Sender: FDA-Public Use
  Company Number: RO-AMNEAL PHARMACEUTICALS-2021-AMRX-01008

PATIENT
  Age: 73 Year
  Sex: Female

DRUGS (3)
  1. METHOTREXATE. [Concomitant]
     Active Substance: METHOTREXATE
     Indication: RHEUMATOID ARTHRITIS
     Dosage: 2.5 MILLIGRAM, 3X/WEEK
     Route: 065
  2. GENTAMICIN. [Concomitant]
     Active Substance: GENTAMICIN
     Indication: ULCERATIVE KERATITIS
     Dosage: UNK
     Route: 047
  3. INDOMETHACIN. [Suspect]
     Active Substance: INDOMETHACIN
     Indication: ULCERATIVE KERATITIS
     Dosage: UNK UNK, 4X/DAY
     Route: 047

REACTIONS (1)
  - Corneal perforation [Recovered/Resolved]
